FAERS Safety Report 6414974-0 (Version None)
Quarter: 2009Q4

REPORT INFORMATION
  Report Type: 
  Country: None (occurrence: None)
  Receive Date: 20091026
  Receipt Date: 20090624
  Transmission Date: 20100525
  Serious: No
  Sender: FDA-Public Use
  Company Number: US-ABBOTT-09P-163-0582251-00

PATIENT
  Sex: Female
  Weight: 72.64 kg

DRUGS (3)
  1. LUPRON DEPOT [Suspect]
     Indication: OOPHORECTOMY
     Dosage: UNKNOWN DOSE, ONE SHOT IN OFFICE
     Dates: start: 20090301, end: 20090301
  2. LUPRON DEPOT [Suspect]
     Dosage: UNKNOWN
     Dates: start: 20090401
  3. VITAMINS [Concomitant]
     Indication: VITAMIN SUPPLEMENTATION
     Dosage: UNKNOWN

REACTIONS (1)
  - MUSCULAR WEAKNESS [None]
